FAERS Safety Report 5798800-9 (Version None)
Quarter: 2008Q3

REPORT INFORMATION
  Report Type: 
  Country: None (occurrence: None)
  Receive Date: 20080702
  Receipt Date: 20080626
  Transmission Date: 20090109
  Serious: Yes (Hospitalization, Other)
  Sender: FDA-Public Use
  Company Number: US-GILEAD-2008-0017068

PATIENT
  Sex: Female

DRUGS (10)
  1. LETAIRIS [Suspect]
     Indication: PULMONARY ARTERIAL HYPERTENSION
     Route: 048
     Dates: start: 20070918, end: 20070924
  2. LETAIRIS [Suspect]
     Route: 048
     Dates: start: 20071106
  3. REVATIO [Concomitant]
  4. TREPROSTINIL [Concomitant]
  5. COUMADIN [Concomitant]
  6. LASIX [Concomitant]
  7. ALDACTONE [Concomitant]
  8. AVALIDE [Concomitant]
  9. PAXIL [Concomitant]
  10. NEXIUM [Concomitant]

REACTIONS (5)
  - COUGH [None]
  - DYSPNOEA [None]
  - HYPOXIA [None]
  - INCREASED UPPER AIRWAY SECRETION [None]
  - PNEUMONIA [None]
